FAERS Safety Report 19645728 (Version 1)
Quarter: 2021Q3

REPORT INFORMATION
  Report Type: Spontaneous
  Country: US (occurrence: US)
  Receive Date: 20210801
  Receipt Date: 20210801
  Transmission Date: 20211014
  Serious: Yes (Life-Threatening, Hospitalization, Other)
  Sender: FDA-Public Use
  Company Number: None

PATIENT
  Age: 61 Year
  Sex: Female
  Weight: 81.45 kg

DRUGS (9)
  1. COLACE [Concomitant]
     Active Substance: DOCUSATE SODIUM
  2. FLEXERIL [Suspect]
     Active Substance: CYCLOBENZAPRINE HYDROCHLORIDE
     Indication: MUSCLE SPASMS
     Dosage: ?          QUANTITY:1 TABLET(S);?
     Route: 048
     Dates: start: 20161115, end: 20210721
  3. ARMOUR THYROID [Concomitant]
     Active Substance: THYROID, PORCINE
  4. LACTULOSE. [Concomitant]
     Active Substance: LACTULOSE
  5. NORVASK [Concomitant]
     Active Substance: AMLODIPINE BESYLATE
  6. MINT TEA WITH CALENDULA [Concomitant]
  7. ROCATROL [Concomitant]
  8. CLONAPIN [Concomitant]
     Active Substance: CLONAZEPAM
  9. TYLENOL [Concomitant]
     Active Substance: ACETAMINOPHEN

REACTIONS (3)
  - Infection [None]
  - Dehydration [None]
  - Colitis ischaemic [None]

NARRATIVE: CASE EVENT DATE: 20210721
